FAERS Safety Report 24996352 (Version 2)
Quarter: 2025Q2

REPORT INFORMATION
  Report Type: Spontaneous
  Country: US (occurrence: None)
  Receive Date: 20250221
  Receipt Date: 20250527
  Transmission Date: 20250716
  Serious: Yes (Other)
  Sender: INCYTE
  Company Number: US-INCYTE CORPORATION-2025IN001576

PATIENT
  Age: 68 Year

DRUGS (2)
  1. JAKAFI [Suspect]
     Active Substance: RUXOLITINIB
     Indication: Polycythaemia vera
     Route: 065
  2. BESREMI [Concomitant]
     Active Substance: ROPEGINTERFERON ALFA-2B-NJFT
     Indication: Product used for unknown indication
     Route: 065

REACTIONS (13)
  - Retinal haemorrhage [Unknown]
  - Photophobia [Unknown]
  - Fatigue [Not Recovered/Not Resolved]
  - Post-acute COVID-19 syndrome [Unknown]
  - Respiratory alkalosis [Unknown]
  - Bradyphrenia [Not Recovered/Not Resolved]
  - Decreased activity [Unknown]
  - Visual impairment [Unknown]
  - Myalgia [Unknown]
  - Brain fog [Unknown]
  - Mass [Unknown]
  - Hypotension [Unknown]
  - Anaemia [Unknown]
